FAERS Safety Report 16857437 (Version 1)
Quarter: 2019Q3

REPORT INFORMATION
  Report Type: Spontaneous
  Country: CN (occurrence: CN)
  Receive Date: 20190926
  Receipt Date: 20190926
  Transmission Date: 20191005
  Serious: Yes (Other)
  Sender: FDA-Public Use
  Company Number: CN-PFIZER INC-2019410759

PATIENT
  Age: 6 Month
  Sex: Male
  Weight: 9 kg

DRUGS (1)
  1. SOLU-MEDROL [Suspect]
     Active Substance: METHYLPREDNISOLONE SODIUM SUCCINATE
     Indication: ANTIINFLAMMATORY THERAPY
     Dosage: 9 MG, 1X/DAY
     Route: 041
     Dates: start: 20190919, end: 20190919

REACTIONS (8)
  - Rash [Recovering/Resolving]
  - Dysphoria [Recovering/Resolving]
  - Erythema [Recovering/Resolving]
  - Urticaria [Recovering/Resolving]
  - Eyelid oedema [Recovering/Resolving]
  - Dyspnoea [Recovering/Resolving]
  - Peripheral swelling [Recovering/Resolving]
  - Tachypnoea [Recovering/Resolving]

NARRATIVE: CASE EVENT DATE: 20190919
